FAERS Safety Report 16094855 (Version 1)
Quarter: 2019Q1

REPORT INFORMATION
  Report Type: Spontaneous
  Country: US (occurrence: US)
  Receive Date: 20190320
  Receipt Date: 20190320
  Transmission Date: 20190418
  Serious: Yes (Death, Other)
  Sender: FDA-Public Use
  Company Number: US-BRISTOL-MYERS SQUIBB COMPANY-BMS-2019-026830

PATIENT
  Age: 60 Year
  Sex: Female

DRUGS (2)
  1. NIVOLUMAB [Suspect]
     Active Substance: NIVOLUMAB
     Indication: UVEAL MELANOMA
     Dosage: UNK
     Route: 065
  2. IPILIMUMAB [Suspect]
     Active Substance: IPILIMUMAB
     Indication: UVEAL MELANOMA
     Dosage: UNK
     Route: 065

REACTIONS (8)
  - Retinal detachment [Unknown]
  - Ocular toxicity [Unknown]
  - Chorioretinopathy [Unknown]
  - Vitiligo [Unknown]
  - Duodenitis [Recovered/Resolved]
  - Tinnitus [Unknown]
  - Skin toxicity [Unknown]
  - General physical health deterioration [Fatal]
